FAERS Safety Report 8206980-0 (Version None)
Quarter: 2012Q1

REPORT INFORMATION
  Report Type: 
  Country: None (occurrence: None)
  Receive Date: 20120314
  Receipt Date: 20120302
  Transmission Date: 20120608
  Serious: Yes (Other)
  Sender: FDA-Public Use
  Company Number: US-ELI_LILLY_AND_COMPANY-US201201007378

PATIENT
  Sex: Female

DRUGS (2)
  1. FORTEO [Suspect]
     Indication: OSTEOPOROSIS
     Dosage: 20 UG, QD
     Route: 065
  2. ENBREL [Concomitant]
     Indication: ARTHRITIS

REACTIONS (19)
  - FATIGUE [None]
  - LOWER LIMB FRACTURE [None]
  - PULMONARY CONGESTION [None]
  - MALAISE [None]
  - DEPRESSION [None]
  - JOINT DISLOCATION [None]
  - DECREASED ACTIVITY [None]
  - ARTHRALGIA [None]
  - ABNORMAL BEHAVIOUR [None]
  - ANXIETY [None]
  - FALL [None]
  - DECREASED APPETITE [None]
  - FEELING ABNORMAL [None]
  - CEREBRAL HAEMORRHAGE [None]
  - HOT FLUSH [None]
  - WEIGHT DECREASED [None]
  - SLEEP DISORDER DUE TO A GENERAL MEDICAL CONDITION [None]
  - NIGHT SWEATS [None]
  - NAUSEA [None]
